FAERS Safety Report 9056768 (Version 1)
Quarter: 2013Q1

REPORT INFORMATION
  Report Type: Spontaneous
  Country: ES (occurrence: ES)
  Receive Date: 20130201
  Receipt Date: 20130201
  Transmission Date: 20140127
  Serious: Yes (Other)
  Sender: FDA-Public Use
  Company Number: ES-JNJFOC-20130112208

PATIENT
  Sex: Male

DRUGS (5)
  1. RISPERDAL [Suspect]
     Indication: SCHIZOPHRENIA
     Route: 030
     Dates: start: 201102, end: 20130117
  2. LEVOMEPROMAZINE [Concomitant]
     Indication: SCHIZOPHRENIA
     Route: 065
  3. ARIPIPRAZOLE [Concomitant]
     Indication: SCHIZOPHRENIA
     Route: 065
  4. BIPERIDEN [Concomitant]
     Indication: SCHIZOPHRENIA
     Route: 065
  5. HALOPERIDOL [Concomitant]
     Indication: SCHIZOPHRENIA
     Route: 065

REACTIONS (3)
  - Injection site inflammation [Recovering/Resolving]
  - Injection site induration [Recovering/Resolving]
  - Erythema [Recovering/Resolving]
